FAERS Safety Report 10914455 (Version 1)
Quarter: 2015Q1

REPORT INFORMATION
  Report Type: Spontaneous
  Country: US (occurrence: None)
  Receive Date: 20150311
  Receipt Date: 20150311
  Transmission Date: 20150721
  Serious: Yes (Hospitalization)
  Sender: FDA-Public Use
  Company Number: BR15-060-AE

PATIENT
  Age: 22 Month
  Sex: Female

DRUGS (1)
  1. BUPRENORPHINE /NALOXONE SUBLINGUAL TABLETS [Suspect]
     Active Substance: BUPRENORPHINE\NALOXONE
     Dosage: 1 PILL, ORAL
     Route: 048

REACTIONS (2)
  - Accidental exposure to product by child [None]
  - Malaise [None]

NARRATIVE: CASE EVENT DATE: 20141011
